FAERS Safety Report 16810513 (Version 2)
Quarter: 2019Q4

REPORT INFORMATION
  Report Type: Report from Study
  Country: US (occurrence: US)
  Receive Date: 20190916
  Receipt Date: 20191010
  Transmission Date: 20200122
  Serious: Yes (Hospitalization, Other)
  Sender: FDA-Public Use
  Company Number: US-JNJFOC-20190910782

PATIENT
  Age: 77 Year
  Sex: Male

DRUGS (9)
  1. FERROUS SULFATE. [Concomitant]
     Active Substance: FERROUS SULFATE
  2. IMBRUVICA [Suspect]
     Active Substance: IBRUTINIB
     Indication: WALDENSTROM^S MACROGLOBULINAEMIA
     Dosage: 420 MG, QD
     Route: 048
     Dates: start: 20180530, end: 20190826
  3. MIRALAX [Concomitant]
     Active Substance: POLYETHYLENE GLYCOL 3350
  4. SINGULAIR [Concomitant]
     Active Substance: MONTELUKAST SODIUM
  5. MUCINEX [Concomitant]
     Active Substance: GUAIFENESIN
  6. IMBRUVICA [Suspect]
     Active Substance: IBRUTINIB
     Dosage: 420 MG, QD
     Route: 048
     Dates: start: 20180531
  7. XGEVA [Concomitant]
     Active Substance: DENOSUMAB
  8. PROSCAR [Concomitant]
     Active Substance: FINASTERIDE
  9. LEXAPRO [Concomitant]
     Active Substance: ESCITALOPRAM OXALATE

REACTIONS (6)
  - Colitis [Not Recovered/Not Resolved]
  - Urinary tract infection [Unknown]
  - Cellulitis [Not Recovered/Not Resolved]
  - Device related infection [Unknown]
  - Abdominal distension [Not Recovered/Not Resolved]
  - Pleural effusion [Unknown]

NARRATIVE: CASE EVENT DATE: 20190826
